FAERS Safety Report 24140514 (Version 1)
Quarter: 2024Q3

REPORT INFORMATION
  Report Type: Spontaneous
  Country: FR (occurrence: FR)
  Receive Date: 20240726
  Receipt Date: 20240726
  Transmission Date: 20241016
  Serious: Yes (Other)
  Sender: IDORSIA PHARMACEUTICALS
  Company Number: FR-IDORSIA-008306-2024-FR

PATIENT
  Age: 45 Year
  Sex: Female

DRUGS (1)
  1. QUVIVIQ [Suspect]
     Active Substance: DARIDOREXANT
     Indication: Insomnia
     Dosage: 50 MG
     Route: 048

REACTIONS (1)
  - Acute myocardial infarction [Recovered/Resolved]
